FAERS Safety Report 8076351-9 (Version None)
Quarter: 2012Q1

REPORT INFORMATION
  Report Type: 
  Country: None (occurrence: None)
  Receive Date: 20120127
  Receipt Date: 20111103
  Transmission Date: 20120608
  Serious: No
  Sender: FDA-Public Use
  Company Number: US-VIIV HEALTHCARE LIMITED-A0954218A

PATIENT
  Sex: Male

DRUGS (1)
  1. COMBIVIR [Suspect]
     Route: 065

REACTIONS (2)
  - ILL-DEFINED DISORDER [None]
  - LIPODYSTROPHY ACQUIRED [None]
